FAERS Safety Report 6737473-5 (Version None)
Quarter: 2010Q2

REPORT INFORMATION
  Report Type: 
  Country: None (occurrence: None)
  Receive Date: 20100524
  Receipt Date: 20100514
  Transmission Date: 20101027
  Serious: Yes (Hospitalization, Other)
  Sender: FDA-Public Use
  Company Number: US-BAYER-201016041NA

PATIENT
  Age: 27 Year
  Sex: Female

DRUGS (2)
  1. YAZ [Suspect]
     Indication: ACNE
     Route: 048
     Dates: start: 20040101, end: 20090501
  2. YASMIN [Suspect]
     Indication: ACNE
     Route: 048
     Dates: start: 20040101, end: 20090501

REACTIONS (1)
  - CHOLECYSTECTOMY [None]
